FAERS Safety Report 10538828 (Version 1)
Quarter: 2014Q4

REPORT INFORMATION
  Report Type: Spontaneous
  Country: PT (occurrence: PT)
  Receive Date: 20141023
  Receipt Date: 20141023
  Transmission Date: 20150529
  Serious: Yes (Death, Other)
  Sender: FDA-Public Use
  Company Number: PHHY2014PT137549

PATIENT
  Age: 47 Year
  Sex: Male

DRUGS (4)
  1. TEMSIROLIMUS [Suspect]
     Active Substance: TEMSIROLIMUS
     Indication: METASTATIC RENAL CELL CARCINOMA
     Route: 065
  2. SUNITINIB [Suspect]
     Active Substance: SUNITINIB
     Indication: METASTASIS
     Route: 065
  3. SORAFENIB [Concomitant]
     Active Substance: SORAFENIB
     Indication: MALIGNANT NEOPLASM PROGRESSION
     Route: 065
  4. ZOLEDRONATE [Suspect]
     Active Substance: ZOLEDRONIC ACID
     Indication: METASTATIC RENAL CELL CARCINOMA
     Route: 065

REACTIONS (11)
  - Pancreatitis acute [Unknown]
  - Death [Fatal]
  - Metastatic renal cell carcinoma [Unknown]
  - Metastases to adrenals [Unknown]
  - Metastases to lymph nodes [Unknown]
  - Tongue cancer metastatic [Unknown]
  - Metastases to bone [Unknown]
  - Metastases to liver [Unknown]
  - Metastases to muscle [Unknown]
  - Malignant neoplasm progression [Unknown]
  - Metastases to lung [Unknown]
